FAERS Safety Report 16117024 (Version 5)
Quarter: 2024Q1

REPORT INFORMATION
  Report Type: Spontaneous
  Country: US (occurrence: US)
  Receive Date: 20190326
  Receipt Date: 20240220
  Transmission Date: 20240410
  Serious: No
  Sender: FDA-Public Use
  Company Number: US-PFIZER INC-2019124975

PATIENT
  Age: 61 Year
  Sex: Female

DRUGS (4)
  1. XELJANZ XR [Suspect]
     Active Substance: TOFACITINIB CITRATE
     Indication: Rheumatoid arthritis
     Dosage: 11 MG, DAILY
     Route: 048
  2. XELJANZ XR [Suspect]
     Active Substance: TOFACITINIB CITRATE
     Dosage: TAKING ONE PILL (11 MG) A WEEK
  3. ALEVE [Concomitant]
     Active Substance: NAPROXEN SODIUM
  4. MELOXICAM [Concomitant]
     Active Substance: MELOXICAM

REACTIONS (6)
  - Abdominal distension [Unknown]
  - Constipation [Unknown]
  - Osteoporosis [Unknown]
  - Nasopharyngitis [Unknown]
  - Pain in extremity [Unknown]
  - Intentional product misuse [Unknown]
